FAERS Safety Report 6114416-9 (Version None)
Quarter: 2009Q1

REPORT INFORMATION
  Report Type: 
  Country: None (occurrence: None)
  Receive Date: 20090313
  Receipt Date: 20090303
  Transmission Date: 20090719
  Serious: Yes (Life-Threatening, Hospitalization, Disabling, Other)
  Sender: FDA-Public Use
  Company Number: GB-RANBAXY-2006RR-03071

PATIENT
  Age: 35 Year
  Sex: Male

DRUGS (1)
  1. LORATADINE [Suspect]
     Indication: SEASONAL ALLERGY
     Dosage: 10 MG, QD
     Dates: start: 20030501, end: 20030701

REACTIONS (12)
  - AUTOIMMUNE HEPATITIS [None]
  - CHOLESTASIS [None]
  - FEELING ABNORMAL [None]
  - FLUID RETENTION [None]
  - HEPATITIS [None]
  - JAUNDICE [None]
  - LEUKOPENIA [None]
  - MALAISE [None]
  - NEUTROPENIA [None]
  - PAIN [None]
  - PRURITUS [None]
  - THIRST [None]
